FAERS Safety Report 9721504 (Version 1)
Quarter: 2013Q4

REPORT INFORMATION
  Report Type: Spontaneous
  Country: US (occurrence: US)
  Receive Date: 20131130
  Receipt Date: 20131130
  Transmission Date: 20140711
  Serious: No
  Sender: FDA-Public Use
  Company Number: US-009507513-1311USA011576

PATIENT
  Age: 36 Year
  Sex: Female

DRUGS (2)
  1. NASONEX [Suspect]
     Indication: HYPERSENSITIVITY
     Dosage: 50 MICROGRAM, 2 SPRAYS IN EACH NOSTRIL, QD
     Route: 045
     Dates: start: 201309, end: 201310
  2. NASONEX [Suspect]
     Indication: ASTHMA
     Dosage: 50 MICROGRAM, 2 SPRAYS IN EACH NOSTRIL, QD
     Route: 045
     Dates: start: 20131101, end: 20131119

REACTIONS (2)
  - Pruritus [Recovered/Resolved]
  - Pruritus [Not Recovered/Not Resolved]
